FAERS Safety Report 15600342 (Version 1)
Quarter: 2018Q4

REPORT INFORMATION
  Report Type: Spontaneous
  Country: US (occurrence: US)
  Receive Date: 20181109
  Receipt Date: 20181109
  Transmission Date: 20190205
  Serious: No
  Sender: FDA-Public Use
  Company Number: CN-ASTRAZENECA-2018SF46516

PATIENT
  Age: 69 Year
  Sex: Male
  Weight: 97.5 kg

DRUGS (1)
  1. NEXIUM [Suspect]
     Active Substance: ESOMEPRAZOLE MAGNESIUM
     Indication: ULCER
     Dosage: 20 MG, 2X/DAY (ONE IN THE MORNING AND ONE AT NIGHT)
     Route: 048

REACTIONS (2)
  - Off label use [Not Recovered/Not Resolved]
  - Weight decreased [Unknown]
